FAERS Safety Report 6411332-X (Version None)
Quarter: 2009Q4

REPORT INFORMATION
  Report Type: 
  Country: None (occurrence: None)
  Receive Date: 20091023
  Receipt Date: 20091013
  Transmission Date: 20100525
  Serious: Yes (Other)
  Sender: FDA-Public Use
  Company Number: FR-BAYER-200917128GPV

PATIENT
  Age: 42 Year
  Sex: Female

DRUGS (2)
  1. MIRENA [Suspect]
     Indication: CONTRACEPTION
     Route: 015
     Dates: start: 20011024, end: 20060913
  2. MIRENA [Suspect]
     Route: 015
     Dates: start: 20060913

REACTIONS (1)
  - BREAST CANCER [None]
